FAERS Safety Report 5336707-1 (Version None)
Quarter: 2007Q2

REPORT INFORMATION
  Report Type: 
  Country: None (occurrence: None)
  Receive Date: 20070529
  Receipt Date: 20070515
  Transmission Date: 20071010
  Serious: Yes (Hospitalization)
  Sender: FDA-Public Use
  Company Number: JP-ROCHE-488625

PATIENT
  Age: 15 Year
  Sex: Male
  Weight: 56 kg

DRUGS (4)
  1. TAMIFLU [Suspect]
     Route: 048
     Dates: start: 20070313, end: 20070313
  2. BANAN [Concomitant]
     Route: 048
     Dates: start: 20070313, end: 20070313
  3. HUSCODE [Concomitant]
     Route: 048
     Dates: start: 20070313, end: 20070313
  4. CALONAL [Concomitant]
     Route: 048
     Dates: start: 20070313, end: 20070313

REACTIONS (1)
  - ABNORMAL BEHAVIOUR [None]
